FAERS Safety Report 23610418 (Version 2)
Quarter: 2024Q1

REPORT INFORMATION
  Report Type: Spontaneous
  Country: FR (occurrence: FR)
  Receive Date: 20240308
  Receipt Date: 20240312
  Transmission Date: 20240410
  Serious: Yes (Disabling, Other)
  Sender: FDA-Public Use
  Company Number: FR-002147023-NVSC2024FR047637

PATIENT
  Age: 50 Year
  Sex: Male
  Weight: 98 kg

DRUGS (4)
  1. MEKINIST [Suspect]
     Active Substance: TRAMETINIB DIMETHYL SULFOXIDE
     Indication: BRAF gene mutation
     Dosage: UNK
     Route: 065
     Dates: start: 202212
  2. MEKINIST [Suspect]
     Active Substance: TRAMETINIB DIMETHYL SULFOXIDE
     Dosage: UNK
     Route: 065
     Dates: end: 202309
  3. TAFINLAR [Suspect]
     Active Substance: DABRAFENIB MESYLATE
     Indication: BRAF gene mutation
     Dosage: UNK
     Route: 065
     Dates: start: 202212
  4. TAFINLAR [Suspect]
     Active Substance: DABRAFENIB MESYLATE
     Dosage: UNK
     Route: 065
     Dates: end: 202309

REACTIONS (3)
  - Hyperthermia [Unknown]
  - Hepatic cytolysis [Unknown]
  - Erythema nodosum [Unknown]

NARRATIVE: CASE EVENT DATE: 20231001
